FAERS Safety Report 9890371 (Version 1)
Quarter: 2014Q1

REPORT INFORMATION
  Report Type: Spontaneous
  Country: US (occurrence: None)
  Receive Date: 20140211
  Receipt Date: 20140211
  Transmission Date: 20141002
  Serious: Yes (Other)
  Sender: FDA-Public Use
  Company Number: None

PATIENT
  Age: 67 Year
  Sex: Female
  Weight: 62.14 kg

DRUGS (1)
  1. PROAIR [Suspect]
     Dosage: 2 PUFFS
     Route: 055
     Dates: start: 20140202, end: 20140207

REACTIONS (2)
  - Drug effect decreased [None]
  - Product substitution issue [None]
